FAERS Safety Report 8962471 (Version 1)
Quarter: 2012Q4

REPORT INFORMATION
  Report Type: 
  Country: FR (occurrence: FR)
  Receive Date: 20121214
  Receipt Date: 20121214
  Transmission Date: 20130627
  Serious: Yes (Hospitalization)
  Sender: FDA-Public Use
  Company Number: FR-JNJFOC-20121114425

PATIENT
  Age: 86 Year
  Sex: Male

DRUGS (11)
  1. IXPRIM [Suspect]
     Indication: BACK PAIN
     Route: 048
     Dates: start: 20121025, end: 20121029
  2. PREVISCAN [Interacting]
     Indication: ATRIAL FIBRILLATION
     Dosage: 0.25 of a tablet
     Route: 048
     Dates: start: 20121108
  3. PREVISCAN [Interacting]
     Indication: ATRIAL FIBRILLATION
     Dosage: 15-20mg
     Route: 048
     Dates: end: 20121029
  4. PREVISCAN [Interacting]
     Indication: ATRIAL FIBRILLATION
     Dosage: 0.25 of a tablet
     Route: 048
     Dates: start: 20121110
  5. PREVISCAN [Interacting]
     Indication: ATRIAL FIBRILLATION
     Dosage: half tab
     Route: 048
     Dates: start: 20121031, end: 20121102
  6. SEROPLEX [Interacting]
     Indication: BACK PAIN
     Route: 065
     Dates: start: 20121025, end: 20121029
  7. BIPERIDYS [Concomitant]
     Indication: BACK PAIN
     Route: 048
     Dates: start: 20121025, end: 20121029
  8. VASTAREL [Concomitant]
     Indication: PRODUCT USED FOR UNKNOWN INDICATION
     Route: 048
  9. NIFLUGEL [Concomitant]
     Indication: BACK PAIN
     Route: 061
     Dates: start: 20121025, end: 20121029
  10. LIPANTHYL [Concomitant]
     Indication: PRODUCT USED FOR UNKNOWN INDICATION
     Route: 048
  11. ACEBUTOLOL [Concomitant]
     Indication: PRODUCT USED FOR UNKNOWN INDICATION
     Route: 048

REACTIONS (2)
  - Drug interaction [Recovered/Resolved]
  - International normalised ratio increased [Recovered/Resolved]
